FAERS Safety Report 4808396-3 (Version None)
Quarter: 2005Q4

REPORT INFORMATION
  Report Type: 
  Country: None (occurrence: None)
  Receive Date: 20051021
  Receipt Date: 20040204
  Transmission Date: 20060501
  Serious: Yes (Life-Threatening)
  Sender: FDA-Public Use
  Company Number: JP_040202592

PATIENT
  Age: 33 Year
  Sex: Male
  Weight: 63 kg

DRUGS (8)
  1. ZYPREXA [Suspect]
     Indication: SCHIZOPHRENIA
     Dosage: 10 MG DAY
     Dates: start: 20040108, end: 20040323
  2. HALOPERIDOL [Concomitant]
  3. LULLAN (PEROSPIRONE HYDROCHLORIDE) [Concomitant]
  4. DORAL [Concomitant]
  5. AKINETON [Concomitant]
  6. BERIZYM [Concomitant]
  7. PURSENNID (SENNA LEAF) [Concomitant]
  8. ESTAZOLAM [Concomitant]

REACTIONS (8)
  - BLOOD PRESSURE SYSTOLIC DECREASED [None]
  - BODY TEMPERATURE DECREASED [None]
  - ELECTROCARDIOGRAM T WAVE INVERSION [None]
  - HYPOXIA [None]
  - PULMONARY ARTERY THROMBOSIS [None]
  - PULMONARY EMBOLISM [None]
  - RIGHT VENTRICULAR FAILURE [None]
  - UNRESPONSIVE TO VERBAL STIMULI [None]
